FAERS Safety Report 6630564-9 (Version None)
Quarter: 2010Q1

REPORT INFORMATION
  Report Type: 
  Country: None (occurrence: None)
  Receive Date: 20100311
  Receipt Date: 20090924
  Transmission Date: 20100710
  Serious: Yes (Hospitalization)
  Sender: FDA-Public Use
  Company Number: US-BIOGENIDEC-2009BI014121

PATIENT
  Age: 35 Year
  Sex: Female

DRUGS (3)
  1. AVONEX [Suspect]
     Indication: MULTIPLE SCLEROSIS
     Route: 030
     Dates: start: 20030101
  2. AVONEX [Suspect]
     Route: 030
     Dates: start: 20080212
  3. AVONEX [Suspect]
     Route: 030
     Dates: start: 19990101, end: 20030101

REACTIONS (5)
  - INFLUENZA [None]
  - INFLUENZA LIKE ILLNESS [None]
  - MULTIPLE SCLEROSIS RELAPSE [None]
  - PAIN [None]
  - WEIGHT DECREASED [None]
